FAERS Safety Report 8615975-4 (Version None)
Quarter: 2012Q3

REPORT INFORMATION
  Report Type: 
  Country: None (occurrence: None)
  Receive Date: 20120823
  Receipt Date: 20120816
  Transmission Date: 20120928
  Serious: Yes (Other)
  Sender: FDA-Public Use
  Company Number: CO-PFIZER INC-2012204667

PATIENT
  Age: 7 Year
  Sex: Female

DRUGS (2)
  1. GENOTROPIN [Suspect]
     Dosage: UNK
     Route: 058
     Dates: start: 20100330, end: 20110328
  2. GENOTROPIN [Suspect]
     Dosage: UNK
     Route: 058
     Dates: start: 20120301

REACTIONS (2)
  - PRODUCT QUALITY ISSUE [None]
  - HIP DEFORMITY [None]
